FAERS Safety Report 24299516 (Version 1)
Quarter: 2024Q3

REPORT INFORMATION
  Report Type: Spontaneous
  Country: IN (occurrence: IN)
  Receive Date: 20240909
  Receipt Date: 20240909
  Transmission Date: 20241017
  Serious: Yes (Hospitalization)
  Sender: PFIZER
  Company Number: IN-PFIZER INC-PV202400083833

PATIENT
  Age: 39 Year
  Sex: Female

DRUGS (19)
  1. INOTUZUMAB OZOGAMICIN [Suspect]
     Active Substance: INOTUZUMAB OZOGAMICIN
     Indication: B-cell type acute leukaemia
     Dosage: 1 MG, CYCLIC, C1D1
     Route: 042
     Dates: start: 20240616, end: 20240616
  2. INOTUZUMAB OZOGAMICIN [Suspect]
     Active Substance: INOTUZUMAB OZOGAMICIN
     Dosage: 1 MG, CYCLIC, C1D8
     Route: 042
     Dates: start: 20240624, end: 20240624
  3. INOTUZUMAB OZOGAMICIN [Suspect]
     Active Substance: INOTUZUMAB OZOGAMICIN
     Dosage: 1 MG, CYCLIC, C2D1
  4. INOTUZUMAB OZOGAMICIN [Suspect]
     Active Substance: INOTUZUMAB OZOGAMICIN
     Dosage: 1 MG, CYCLIC, C2D8
     Dates: start: 20240715, end: 20240715
  5. INOTUZUMAB OZOGAMICIN [Suspect]
     Active Substance: INOTUZUMAB OZOGAMICIN
     Dosage: 1 MG
     Route: 042
     Dates: start: 20240722, end: 20240722
  6. INOTUZUMAB OZOGAMICIN [Suspect]
     Active Substance: INOTUZUMAB OZOGAMICIN
     Dosage: 1 MG, CYCLIC, C3D1
     Route: 042
     Dates: start: 20240729, end: 20240729
  7. INOTUZUMAB OZOGAMICIN [Suspect]
     Active Substance: INOTUZUMAB OZOGAMICIN
     Dosage: 1 MG, CYCLIC, C3D8
     Dates: start: 20240805, end: 20240805
  8. INOTUZUMAB OZOGAMICIN [Suspect]
     Active Substance: INOTUZUMAB OZOGAMICIN
     Dosage: 1 MG, CYCLIC, C4D1
     Route: 041
     Dates: start: 20240826, end: 20240826
  9. DASATINIB [Concomitant]
     Active Substance: DASATINIB
     Indication: B-cell type acute leukaemia
     Dosage: 50 MG, 1-0-0, 2 WEEKS ON 1 WEEK OFF (A/F)
     Dates: start: 20240708, end: 20240708
  10. DASATINIB [Concomitant]
     Active Substance: DASATINIB
     Dosage: C2D1- 50 MG, 2 TABS, 1-0-0 ALTERNATIVE DAYS
  11. DASATINIB [Concomitant]
     Active Substance: DASATINIB
     Dosage: C2D8- 50MG 2-0-0
     Dates: start: 20240715, end: 20240715
  12. DASATINIB [Concomitant]
     Active Substance: DASATINIB
     Dosage: C3D1- 50MG 2-0-0
     Dates: start: 20240729, end: 20240729
  13. DASATINIB [Concomitant]
     Active Substance: DASATINIB
     Dosage: C3D8- 50MG 2-0-0
     Dates: start: 20240805, end: 20240805
  14. DASATINIB [Concomitant]
     Active Substance: DASATINIB
     Dosage: C4D1- 50MG 2-0-0
     Dates: start: 20240826, end: 20240826
  15. ACYCLOVIR [Concomitant]
     Active Substance: ACYCLOVIR
     Dosage: 400 MG, 2X/DAY, 1-0-1
  16. FEBUXOSTAT [Concomitant]
     Active Substance: FEBUXOSTAT
     Dosage: 40 MG, 1X/DAY, 1-0-0
  17. URSODIOL [Concomitant]
     Active Substance: URSODIOL
     Dosage: 300 MG, 2X/DAY, 1-0-1
  18. LIVOPILL [LEVONORGESTREL] [Concomitant]
     Dosage: UNK, 2X/DAY, 1-0-1
  19. DECMAX [Concomitant]
     Dosage: 10 MG

REACTIONS (12)
  - Cough [Recovered/Resolved]
  - Nasopharyngitis [Recovered/Resolved]
  - Weight decreased [Unknown]
  - Haemoglobin decreased [Unknown]
  - White blood cell count increased [Unknown]
  - Platelet count decreased [Unknown]
  - Blood lactate dehydrogenase increased [Unknown]
  - Blood glucose increased [Unknown]
  - Heart rate increased [Unknown]
  - Aspartate aminotransferase increased [Unknown]
  - Blood pressure increased [Unknown]
  - Blood potassium decreased [Unknown]

NARRATIVE: CASE EVENT DATE: 20240817
